FAERS Safety Report 17163284 (Version 1)
Quarter: 2019Q4

REPORT INFORMATION
  Report Type: Spontaneous
  Country: US (occurrence: US)
  Receive Date: 20191124
  Receipt Date: 20191124
  Transmission Date: 20200122
  Serious: No
  Sender: FDA-Public Use
  Company Number: None

PATIENT
  Age: 76 Year
  Sex: Male
  Weight: 135 kg

DRUGS (1)
  1. CIPROFLOXACIN. [Suspect]
     Active Substance: CIPROFLOXACIN
     Indication: UPPER RESPIRATORY TRACT INFECTION
     Route: 042
     Dates: start: 20191025, end: 20191025

REACTIONS (1)
  - Rash [None]

NARRATIVE: CASE EVENT DATE: 20191025
